FAERS Safety Report 25776385 (Version 3)
Quarter: 2025Q3

REPORT INFORMATION
  Report Type: Spontaneous
  Country: US (occurrence: US)
  Receive Date: 20250909
  Receipt Date: 20250929
  Transmission Date: 20251020
  Serious: No
  Sender: BAUSCH AND LOMB
  Company Number: US-BAUSCHBL-2025BNL015718

PATIENT
  Age: 81 Year
  Sex: Male

DRUGS (1)
  1. MIEBO [Suspect]
     Active Substance: PERFLUOROHEXYLOCTANE
     Indication: Product used for unknown indication
     Dosage: ONE DROP INTO HIS LEFT EYE TWO TIMES PER DAY
     Route: 047
     Dates: start: 20250731

REACTIONS (5)
  - Visual impairment [Unknown]
  - Product use issue [Unknown]
  - Product knowledge deficit [Unknown]
  - Product availability issue [Unknown]
  - Prescribed underdose [Unknown]
